FAERS Safety Report 7768230-9 (Version None)
Quarter: 2011Q3

REPORT INFORMATION
  Report Type: 
  Country: None (occurrence: None)
  Receive Date: 20110919
  Receipt Date: 20110902
  Transmission Date: 20111222
  Serious: Yes (Congenital Anomaly, Other)
  Sender: FDA-Public Use
  Company Number: AUR-APL-2011-01218

PATIENT
  Sex: Male
  Weight: 2.608 kg

DRUGS (4)
  1. RIBAVIRIN [Suspect]
     Dosage: TRANSPLACENTAL
     Route: 064
     Dates: start: 20090612, end: 20100514
  2. PEGINTERFERON ALFA-2A [Suspect]
     Dosage: (80 MCG, 1 WK), TRANSPLACENTAL
     Route: 064
     Dates: start: 20090612, end: 20100507
  3. PRILOSEC [Concomitant]
  4. ZYRTEC [Concomitant]

REACTIONS (5)
  - MATERNAL DRUGS AFFECTING FOETUS [None]
  - CAESAREAN SECTION [None]
  - JAUNDICE NEONATAL [None]
  - UMBILICAL CORD VASCULAR DISORDER [None]
  - HAEMOGLOBIN DECREASED [None]
